FAERS Safety Report 6539702-X (Version None)
Quarter: 2010Q1

REPORT INFORMATION
  Report Type: 
  Country: None (occurrence: None)
  Receive Date: 20100111
  Receipt Date: 20091216
  Transmission Date: 20100710
  Serious: Yes (Other)
  Sender: FDA-Public Use
  Company Number: AVE_01294_2009

PATIENT
  Age: 62 Year
  Sex: Female
  Weight: 74.8435 kg

DRUGS (4)
  1. CLONIDINE TRANSDERMAL [Suspect]
     Indication: HYPERTENSION
     Dosage: (0.3 MG QD TRANSDERMAL)
     Route: 062
     Dates: start: 20091101
  2. METOPROLOL [Concomitant]
  3. TEKTURNA [Concomitant]
  4. EXFORGE [Concomitant]

REACTIONS (3)
  - HYPERTENSIVE CRISIS [None]
  - PRODUCT ADHESION ISSUE [None]
  - PRODUCT QUALITY ISSUE [None]
